FAERS Safety Report 5196035-4 (Version None)
Quarter: 2006Q4

REPORT INFORMATION
  Report Type: 
  Country: None (occurrence: None)
  Receive Date: 20061227
  Receipt Date: 20061213
  Transmission Date: 20070319
  Serious: Yes (Other)
  Sender: FDA-Public Use
  Company Number: TKS# 22508

PATIENT
  Age: 42 Year
  Sex: Female

DRUGS (1)
  1. UVADEX (METHOXALEN) USED IN CONJUNCTION WITH THE UVAR XTS PHOTOPHERESI [Suspect]
     Indication: SYSTEMIC SCLEROSIS
     Dosage: 200 MCG EXTRACORPOREAL
     Route: 050
     Dates: start: 20061206, end: 20061206

REACTIONS (7)
  - BLOOD PRESSURE INCREASED [None]
  - CHEST PAIN [None]
  - CHILLS [None]
  - DYSPNOEA [None]
  - FEELING COLD [None]
  - FEELING HOT [None]
  - FLUSHING [None]
